FAERS Safety Report 21026126 (Version 1)
Quarter: 2022Q2

REPORT INFORMATION
  Report Type: Spontaneous
  Country: CA (occurrence: None)
  Receive Date: 20220630
  Receipt Date: 20220630
  Transmission Date: 20220721
  Serious: Yes (Death)
  Sender: FDA-Public Use
  Company Number: CA-ROCHE-3127922

PATIENT
  Age: 82 Year
  Sex: Male

DRUGS (7)
  1. TNKASE [Suspect]
     Active Substance: TENECTEPLASE
     Indication: Thrombolysis
     Dosage: 45 MG ONCE.
     Route: 042
  2. TNKASE [Suspect]
     Active Substance: TENECTEPLASE
     Indication: Acute myocardial infarction
  3. DILAUDID [Concomitant]
     Active Substance: HYDROMORPHONE HYDROCHLORIDE
  4. NITROGLYCERIN [Concomitant]
     Active Substance: NITROGLYCERIN
  5. NITROGLYCERIN [Concomitant]
     Active Substance: NITROGLYCERIN
  6. ASPIRIN [Concomitant]
     Active Substance: ASPIRIN
     Route: 065
  7. ENOXAPARIN [Concomitant]
     Active Substance: ENOXAPARIN

REACTIONS (6)
  - Hypertension [Fatal]
  - Haemorrhage intracranial [Fatal]
  - Agitation [Fatal]
  - Depressed level of consciousness [Fatal]
  - Incorrect dose administered [Fatal]
  - Hemiplegia [Fatal]
